FAERS Safety Report 13389141 (Version 1)
Quarter: 2017Q1

REPORT INFORMATION
  Report Type: Spontaneous
  Country: US (occurrence: US)
  Receive Date: 20170330
  Receipt Date: 20170330
  Transmission Date: 20170429
  Serious: Yes (Disabling, Other)
  Sender: FDA-Public Use
  Company Number: US-SA-2017SA051188

PATIENT
  Age: 62 Year
  Sex: Female

DRUGS (2)
  1. SOLOSTAR [Concomitant]
     Active Substance: DEVICE
     Dates: start: 2015
  2. LANTUS SOLOSTAR [Suspect]
     Active Substance: INSULIN GLARGINE
     Indication: TYPE 2 DIABETES MELLITUS
     Dosage: 45 U AM/65 U PM
     Route: 065
     Dates: start: 2015

REACTIONS (4)
  - Incorrect product storage [Unknown]
  - Disability [Unknown]
  - Product use issue [Unknown]
  - Brain neoplasm [Unknown]

NARRATIVE: CASE EVENT DATE: 2015
